FAERS Safety Report 5910282-2 (Version None)
Quarter: 2008Q4

REPORT INFORMATION
  Report Type: 
  Country: None (occurrence: None)
  Receive Date: 20081007
  Receipt Date: 20080819
  Transmission Date: 20090506
  Serious: No
  Sender: FDA-Public Use
  Company Number: A0743315A

PATIENT
  Age: 70 Year
  Sex: Female

DRUGS (5)
  1. ADVAIR DISKUS 100/50 [Suspect]
     Indication: CHRONIC OBSTRUCTIVE PULMONARY DISEASE
     Dosage: 1PUFF TWICE PER DAY
     Route: 055
     Dates: start: 20080629
  2. INSULATARD NPH HUMAN [Concomitant]
  3. ZANTAC 150 [Concomitant]
  4. DARVOCET [Concomitant]
  5. CALCIUM [Concomitant]

REACTIONS (2)
  - CHANGE OF BOWEL HABIT [None]
  - FAECAL INCONTINENCE [None]
